FAERS Safety Report 12825730 (Version 1)
Quarter: 2016Q4

REPORT INFORMATION
  Report Type: Spontaneous
  Country: US (occurrence: US)
  Receive Date: 20161007
  Receipt Date: 20161007
  Transmission Date: 20170207
  Serious: Yes (Other)
  Sender: FDA-Public Use
  Company Number: None

PATIENT
  Age: 66 Year
  Sex: Female
  Weight: 64.35 kg

DRUGS (5)
  1. OXYCODONE [Suspect]
     Active Substance: OXYCODONE
     Indication: ROTATOR CUFF REPAIR
     Dosage: ?          QUANTITY:40 TABLET(S);?
     Route: 048
     Dates: start: 20160929, end: 20161003
  2. BUPROPION. [Concomitant]
     Active Substance: BUPROPION
  3. ASPIRIN. [Concomitant]
     Active Substance: ASPIRIN
  4. PROBIOTIC [Concomitant]
     Active Substance: PROBIOTICS NOS
  5. OMEPRAZOLE. [Concomitant]
     Active Substance: OMEPRAZOLE

REACTIONS (3)
  - Pain [None]
  - Somnolence [None]
  - Drug ineffective [None]

NARRATIVE: CASE EVENT DATE: 20161003
